FAERS Safety Report 19307762 (Version 1)
Quarter: 2021Q2

REPORT INFORMATION
  Report Type: Spontaneous
  Country: US (occurrence: US)
  Receive Date: 20210525
  Receipt Date: 20210525
  Transmission Date: 20210717
  Serious: Yes (Other)
  Sender: FDA-Public Use
  Company Number: US-PURDUE PHARMA-USA-2021-0236741

PATIENT
  Sex: Female

DRUGS (1)
  1. OXYCODONE HYDROCHLORIDE (SIMILAR TO NDA 22?272) [Suspect]
     Active Substance: OXYCODONE HYDROCHLORIDE
     Indication: INJURY
     Dosage: 20 MG, UNK
     Route: 048

REACTIONS (5)
  - Loss of personal independence in daily activities [Unknown]
  - Drug dependence [Unknown]
  - Drug abuse [Unknown]
  - Speech disorder [Unknown]
  - Judgement impaired [Unknown]
